FAERS Safety Report 19908033 (Version 1)
Quarter: 2021Q3

REPORT INFORMATION
  Report Type: Spontaneous
  Country: CN (occurrence: CN)
  Receive Date: 20210930
  Receipt Date: 20210930
  Transmission Date: 20211014
  Serious: Yes (Other)
  Sender: FDA-Public Use
  Company Number: CN-BAXTER-2021BAX023814

PATIENT
  Age: 12 Year
  Sex: Male
  Weight: 41 kg

DRUGS (5)
  1. ENDOXAN [Suspect]
     Active Substance: CYCLOPHOSPHAMIDE
     Indication: ACUTE LYMPHOCYTIC LEUKAEMIA
     Dosage: DILUTED WITH 250 ML OF GLUCOSE AND SODIUM INJECTION (4:1)
     Route: 041
     Dates: start: 20200610, end: 20200610
  2. 5% GLUCOSE AND 0.9% SODIUM CHLORIDE INJECTION [Suspect]
     Active Substance: DEXTROSE\SODIUM CHLORIDE
     Indication: MEDICATION DILUTION
     Dosage: USE AS DILUENT FOR ENDOXAN
     Route: 041
     Dates: start: 20200610, end: 20200610
  3. MERCAPTOPURINE. [Suspect]
     Active Substance: MERCAPTOPURINE
     Indication: ACUTE LYMPHOCYTIC LEUKAEMIA
     Dosage: DOSAGE FORM: TABLET
     Route: 048
     Dates: start: 20200610, end: 20200617
  4. 5% GLUCOSE AND 0.9% SODIUM CHLORIDE INJECTION [Suspect]
     Active Substance: DEXTROSE\SODIUM CHLORIDE
     Dosage: USE AS DILUENT FOR CYTARABIN
     Route: 041
     Dates: start: 20200610, end: 20200613
  5. CYTARABINE. [Suspect]
     Active Substance: CYTARABINE
     Indication: ACUTE LYMPHOCYTIC LEUKAEMIA
     Dosage: DILUTED WITH 250 ML OF GLUCOSE AND SODIUM INJECTION (4:1)
     Route: 041
     Dates: start: 20200610, end: 20200613

REACTIONS (1)
  - Myelosuppression [Recovering/Resolving]

NARRATIVE: CASE EVENT DATE: 20200617
